FAERS Safety Report 25639471 (Version 1)
Quarter: 2025Q3

REPORT INFORMATION
  Report Type: Spontaneous
  Country: US (occurrence: US)
  Receive Date: 20250804
  Receipt Date: 20250804
  Transmission Date: 20251020
  Serious: Yes (Hospitalization, Other)
  Sender: SANDOZ
  Company Number: US-SANDOZ-SDZ2025US054710

PATIENT
  Age: 70 Year
  Sex: Female

DRUGS (1)
  1. ESTRADIOL [Suspect]
     Active Substance: ESTRADIOL
     Indication: Osteoporosis prophylaxis
     Dosage: 0.1MG AND 0.05MG OR TWO 0.75MG PATCHES, BIW (TWO PATCHES)
     Route: 062

REACTIONS (5)
  - Plasma cell myeloma [Unknown]
  - Renal failure [Recovering/Resolving]
  - Haemoglobin decreased [Recovering/Resolving]
  - Respiratory disorder [Unknown]
  - Vomiting [Unknown]
